FAERS Safety Report 6765790-1 (Version None)
Quarter: 2010Q2

REPORT INFORMATION
  Report Type: 
  Country: None (occurrence: None)
  Receive Date: 20100611
  Receipt Date: 20100601
  Transmission Date: 20101027
  Serious: Yes (Hospitalization)
  Sender: FDA-Public Use
  Company Number: US-ROCHE-693788

PATIENT
  Sex: Male

DRUGS (3)
  1. MYCOPHENOLATE MOFETIL [Suspect]
     Route: 065
     Dates: start: 20070214
  2. BELATACEPT [Suspect]
     Route: 042
     Dates: start: 20070214
  3. PREDNISONE [Suspect]
     Route: 065
     Dates: start: 20070214

REACTIONS (2)
  - GANGRENE [None]
  - POSTOPERATIVE WOUND INFECTION [None]
